FAERS Safety Report 8886676 (Version 1)
Quarter: 2012Q4

REPORT INFORMATION
  Report Type: 
  Country: IN (occurrence: IN)
  Receive Date: 20121105
  Receipt Date: 20121105
  Transmission Date: 20130627
  Serious: Yes (Other)
  Sender: FDA-Public Use
  Company Number: PHHY2012IN099553

PATIENT
  Sex: Male

DRUGS (7)
  1. ISONIAZID [Suspect]
     Indication: TUBERCULOSIS
  2. RIFAMPICIN [Suspect]
     Indication: TUBERCULOSIS
  3. ETHAMBUTOL [Suspect]
     Indication: TUBERCULOSIS
  4. OFLOXACIN [Suspect]
     Indication: TUBERCULOSIS
  5. PHENYTOIN [Suspect]
     Indication: TUBERCULOSIS
  6. STREPTOMYCIN [Suspect]
     Indication: TUBERCULOSIS
  7. STEROIDS [Suspect]
     Indication: TUBERCULOSIS

REACTIONS (9)
  - Cerebral infarction [Unknown]
  - Tuberculoma of central nervous system [Unknown]
  - Encephalomalacia [Unknown]
  - Meningitis [Unknown]
  - Convulsion [Unknown]
  - Hydrocephalus [Unknown]
  - Granuloma [Unknown]
  - Muscular weakness [Unknown]
  - Disease progression [Unknown]
